FAERS Safety Report 5382383-1 (Version None)
Quarter: 2007Q3

REPORT INFORMATION
  Report Type: 
  Country: None (occurrence: None)
  Receive Date: 20070709
  Receipt Date: 20070702
  Transmission Date: 20080115
  Serious: Yes (Death)
  Sender: FDA-Public Use
  Company Number: US-MERCK-0707USA00323

PATIENT
  Sex: Male

DRUGS (1)
  1. ZETIA [Suspect]
     Route: 048

REACTIONS (1)
  - COMPLETED SUICIDE [None]
